FAERS Safety Report 11223170 (Version 1)
Quarter: 2015Q2

REPORT INFORMATION
  Report Type: Report from Study
  Country: MX (occurrence: MX)
  Receive Date: 20150626
  Receipt Date: 20150626
  Transmission Date: 20150821
  Serious: Yes (Other)
  Sender: FDA-Public Use
  Company Number: PHHY2015MX072681

PATIENT
  Sex: Female

DRUGS (1)
  1. DIOVAN [Suspect]
     Active Substance: VALSARTAN
     Indication: HYPERTENSION
     Dosage: 2 DF, DAILY
     Route: 065

REACTIONS (7)
  - Blood pressure increased [Unknown]
  - Weight increased [Unknown]
  - Fluid retention [Unknown]
  - Blood pressure inadequately controlled [Recovered/Resolved]
  - Blindness [Unknown]
  - Vision blurred [Unknown]
  - Emotional disorder [Unknown]
